FAERS Safety Report 7085638-8 (Version None)
Quarter: 2010Q4

REPORT INFORMATION
  Report Type: 
  Country: None (occurrence: None)
  Receive Date: 20101105
  Receipt Date: 20101026
  Transmission Date: 20110411
  Serious: Yes (Hospitalization)
  Sender: FDA-Public Use
  Company Number: US-JNJFOC-20101100427

PATIENT
  Sex: Male
  Weight: 44.1 kg

DRUGS (10)
  1. INFLIXIMAB [Suspect]
     Indication: CROHN'S DISEASE
     Route: 042
  2. CIMZIA [Concomitant]
     Indication: CROHN'S DISEASE
  3. PREDNISONE [Concomitant]
  4. ANTIBIOTICS [Concomitant]
     Indication: CROHN'S DISEASE
  5. FERROUS SULFATE [Concomitant]
  6. DULCOLAX [Concomitant]
  7. LEVSIN [Concomitant]
  8. PREVACID [Concomitant]
  9. NORVASC [Concomitant]
  10. TENORMIN [Concomitant]

REACTIONS (1)
  - CROHN'S DISEASE [None]
